FAERS Safety Report 17963307 (Version 2)
Quarter: 2021Q3

REPORT INFORMATION
  Report Type: Other
  Country: SG (occurrence: SG)
  Receive Date: 20200630
  Receipt Date: 20210708
  Transmission Date: 20211014
  Serious: Yes (Other)
  Sender: FDA-Public Use
  Company Number: SG-ROCHE-2630441

PATIENT

DRUGS (2)
  1. BEVACIZUMAB. [Suspect]
     Active Substance: BEVACIZUMAB
     Indication: NEOPLASM
     Dosage: 1 WEEK PRIOR TO EACH NK CELL INFUSION
     Route: 042
  2. TRASTUZUMAB. [Suspect]
     Active Substance: TRASTUZUMAB
     Indication: NEOPLASM
     Dosage: ON DAY 1 OF 21?DAY CYCLES UP TO 8 CYCLES
     Route: 042

REACTIONS (4)
  - Hyponatraemia [Recovered/Resolved]
  - Electrocardiogram change [Recovered/Resolved]
  - Hypokalaemia [Recovered/Resolved]
  - Cellulitis [Recovered/Resolved]
